FAERS Safety Report 5601084-5 (Version None)
Quarter: 2008Q1

REPORT INFORMATION
  Report Type: 
  Country: None (occurrence: None)
  Receive Date: 20080124
  Receipt Date: 20071127
  Transmission Date: 20080703
  Serious: Yes (Hospitalization, Other)
  Sender: FDA-Public Use
  Company Number: US-BAYER-200810227GPV

PATIENT
  Age: 9 Year
  Sex: Male

DRUGS (2)
  1. ASPIRIN [Suspect]
     Indication: ANTIPYRESIS
     Dosage: TOTAL DAILY DOSE: 100 MG/KG
     Route: 048
  2. BENZATHINE PENICILLIN G [Concomitant]
     Indication: INFLAMMATION
     Route: 065

REACTIONS (1)
  - HAEMOLYSIS [None]
